FAERS Safety Report 7406581-8 (Version None)
Quarter: 2011Q2

REPORT INFORMATION
  Report Type: 
  Country: None (occurrence: None)
  Receive Date: 20110406
  Receipt Date: 20110406
  Transmission Date: 20111010
  Serious: Yes (Death, Hospitalization)
  Sender: FDA-Public Use
  Company Number: None

PATIENT
  Age: 72 Year
  Sex: Male
  Weight: 98.8842 kg

DRUGS (15)
  1. NITROGLYCERIN [Concomitant]
  2. LASIX [Concomitant]
  3. ALBUTEROL [Concomitant]
  4. DIGOXIN [Concomitant]
  5. METOPROLOL [Concomitant]
  6. COUMADIN [Concomitant]
  7. LEVAQUIN [Concomitant]
  8. PRAVASTATIN [Concomitant]
  9. ATROVENT [Concomitant]
  10. ALLOPURINOL [Concomitant]
  11. BROVANA [Concomitant]
  12. SORAFENIB 200 TABLETS [Suspect]
     Indication: SMALL CELL LUNG CANCER STAGE UNSPECIFIED
     Dosage: 200 MG BID ORALLY
     Route: 048
     Dates: start: 20110322, end: 20110331
  13. PREDNISONE [Concomitant]
  14. HUMALOG [Concomitant]
  15. LISINOPRIL [Concomitant]

REACTIONS (11)
  - MUSCLE SPASMS [None]
  - DIARRHOEA [None]
  - CHILLS [None]
  - ORAL PAIN [None]
  - STOMATITIS [None]
  - INTERNATIONAL NORMALISED RATIO INCREASED [None]
  - DEHYDRATION [None]
  - FEBRILE NEUTROPENIA [None]
  - DYSPHAGIA [None]
  - RENAL FAILURE ACUTE [None]
  - PLATELET COUNT DECREASED [None]
